FAERS Safety Report 7990577-1 (Version None)
Quarter: 2011Q4

REPORT INFORMATION
  Report Type: 
  Country: None (occurrence: None)
  Receive Date: 20111219
  Receipt Date: 20110322
  Transmission Date: 20120403
  Serious: Yes (Hospitalization)
  Sender: FDA-Public Use
  Company Number: US-ASTRAZENECA-2011SE09554

PATIENT
  Age: 77 Year
  Sex: Male
  Weight: 71.2 kg

DRUGS (8)
  1. COCAL [Concomitant]
  2. PAXIL [Concomitant]
  3. MICARDIS [Concomitant]
  4. CRESTOR [Suspect]
     Indication: HYPOCHOLESTEROLAEMIA
     Route: 048
     Dates: start: 20100601, end: 20110101
  5. CRESTOR [Suspect]
     Indication: CARDIAC DISORDER
     Route: 048
     Dates: start: 20100601, end: 20110101
  6. LEVOXYL [Concomitant]
     Indication: THYROID DISORDER
  7. PLAVIX [Concomitant]
  8. COREG [Concomitant]

REACTIONS (1)
  - RHABDOMYOLYSIS [None]
